FAERS Safety Report 10732453 (Version 1)
Quarter: 2015Q1

REPORT INFORMATION
  Report Type: Spontaneous
  Country: US (occurrence: None)
  Receive Date: 20150120
  Receipt Date: 20150120
  Transmission Date: 20150721
  Serious: Yes (Death)
  Sender: FDA-Public Use
  Company Number: 2015010022

PATIENT
  Age: 49 Year
  Sex: Male

DRUGS (4)
  1. COCAINE (COCAINE) [Suspect]
     Active Substance: COCAINE
  2. FENTANYL (FENTANYL) [Suspect]
     Active Substance: FENTANYL
  3. PAROXETINE (PAROXETINE) [Suspect]
     Active Substance: PAROXETINE HYDROCHLORIDE
  4. ZOLPIDEM (ZOLPIDEM) [Suspect]
     Active Substance: ZOLPIDEM TARTRATE

REACTIONS (1)
  - Drug abuse [None]

NARRATIVE: CASE EVENT DATE: 2013
